FAERS Safety Report 23477313 (Version 1)
Quarter: 2024Q1

REPORT INFORMATION
  Report Type: Report from Study
  Country: CO (occurrence: CO)
  Receive Date: 20240204
  Receipt Date: 20240204
  Transmission Date: 20240410
  Serious: No
  Sender: FDA-Public Use
  Company Number: CO-IPSEN Group, Research and Development-2023-20807

PATIENT
  Sex: Male
  Weight: 58 kg

DRUGS (2)
  1. CABOMETYX [Suspect]
     Active Substance: CABOZANTINIB S-MALATE
     Indication: Renal cancer
     Dosage: 60 MG, QD
  2. NIVOLUMAB [Concomitant]
     Active Substance: NIVOLUMAB
     Indication: Renal cancer
     Dosage: 240 MG, Q2WEEKS

REACTIONS (1)
  - Off label use [Unknown]
